FAERS Safety Report 6815174-2 (Version None)
Quarter: 2010Q2

REPORT INFORMATION
  Report Type: 
  Country: None (occurrence: None)
  Receive Date: 20100630
  Receipt Date: 20100630
  Transmission Date: 20101027
  Serious: Yes (Hospitalization)
  Sender: FDA-Public Use
  Company Number: None

PATIENT
  Age: 37 Year
  Sex: Female
  Weight: 77 kg

DRUGS (8)
  1. ALIMTA [Suspect]
     Indication: SARCOMA
     Dosage: 885MG Q2 WKS. IV
     Route: 042
     Dates: start: 20100601, end: 20100615
  2. TAXOTERE [Suspect]
     Indication: SARCOMA
     Dosage: 88MG Q2 WKS. IV
     Route: 042
     Dates: start: 20100601, end: 20100615
  3. FOLIC ACID [Concomitant]
  4. VITAMIN B-12 [Concomitant]
  5. OXYCONTIN [Concomitant]
  6. OXYCODONE HCL [Concomitant]
  7. KYTRIL [Concomitant]
  8. POTASSIUM CHLORIDE [Concomitant]

REACTIONS (7)
  - BREAST SWELLING [None]
  - LOCALISED OEDEMA [None]
  - MASS [None]
  - OEDEMA PERIPHERAL [None]
  - SUPERIOR VENA CAVAL OCCLUSION [None]
  - SWELLING FACE [None]
  - TUMOUR COMPRESSION [None]
